FAERS Safety Report 15157695 (Version 2)
Quarter: 2019Q1

REPORT INFORMATION
  Report Type: Spontaneous
  Country: IR (occurrence: IR)
  Receive Date: 20180718
  Receipt Date: 20190128
  Transmission Date: 20190417
  Serious: Yes (Hospitalization, Other)
  Sender: FDA-Public Use
  Company Number: IR-CONCORDIA PHARMACEUTICALS INC.-E2B_00012968

PATIENT
  Age: 32 Year
  Sex: Female

DRUGS (2)
  1. BETAMETHASONE. [Suspect]
     Active Substance: BETAMETHASONE
     Indication: MATERNAL THERAPY TO ENHANCE FOETAL LUNG MATURITY
     Dosage: ANTENATAL BETAMETHASONE INJECTIONS
  2. PREDNISOLONE. [Suspect]
     Active Substance: PREDNISOLONE
     Route: 048

REACTIONS (3)
  - Maternal exposure during pregnancy [Unknown]
  - Femoral neck fracture [Recovering/Resolving]
  - Osteoporosis [Recovering/Resolving]
